FAERS Safety Report 5950275-2 (Version None)
Quarter: 2008Q4

REPORT INFORMATION
  Report Type: 
  Country: None (occurrence: None)
  Receive Date: 20081022
  Receipt Date: 20080630
  Transmission Date: 20090506
  Serious: No
  Sender: FDA-Public Use
  Company Number: ALL1-2008-01909

PATIENT
  Age: 61 Year
  Sex: Male
  Weight: 71.7 kg

DRUGS (18)
  1. VYVANSE [Suspect]
     Indication: ATTENTION DEFICIT/HYPERACTIVITY DISORDER
     Dosage: 50 MG, 1X/DAY:QD, ORAL
     Route: 048
     Dates: start: 20080501
  2. ADDERALL 10 [Concomitant]
  3. TOPROL-XL [Concomitant]
  4. BENICAR HCT [Concomitant]
  5. FLOMAX /00889901/ (MORNIFLUMATE) [Concomitant]
  6. ACIPHEX [Concomitant]
  7. ZYTEC /00884302/ (CETIRIZINE HYDROCHLORIDE) [Concomitant]
  8. FOSAMAX PLUS D [Concomitant]
  9. MIRTAZAPINE [Concomitant]
  10. LAMICTAL [Concomitant]
  11. ASPIRIN [Concomitant]
  12. CALCIUM + D (CALCIUM, ERGOCALCIFEROL) [Concomitant]
  13. FIBERCON /00567701/ (POLYCARBOPHIL) [Concomitant]
  14. MULTIVITAMIN /00831701/ (VITAMINS NOS) [Concomitant]
  15. STRESS B COMPLEX /01742401/ (MINERALS NOS, VITAMINS NOS) [Concomitant]
  16. IMODIUM ADVANCED /01493801/ (LOPERAMIDE HYDROCHLORIDE, SIMETICONE) [Concomitant]
  17. TYLENOL SINUS /00435101/ (DIPHENHYDRAMINE HYDROCHLORIDE, PARACETAMOL) [Concomitant]
  18. EXCEDRIN SINUS (PARACETAMOL, PSEUDOEPHEDRINE HYDROCHLORIDE) [Concomitant]

REACTIONS (4)
  - ABDOMINAL PAIN [None]
  - BLOOD PRESSURE DECREASED [None]
  - NAUSEA [None]
  - VOMITING [None]
